FAERS Safety Report 9879396 (Version 1)
Quarter: 2014Q1

REPORT INFORMATION
  Report Type: Spontaneous
  Country: US (occurrence: US)
  Receive Date: 20140206
  Receipt Date: 20140206
  Transmission Date: 20141002
  Serious: No
  Sender: FDA-Public Use
  Company Number: US-TEVA-460766USA

PATIENT
  Age: 49 Year
  Sex: Female
  Weight: 88.53 kg

DRUGS (8)
  1. NUVIGIL [Suspect]
     Indication: FATIGUE
     Dates: start: 20140202, end: 20140202
  2. NUVIGIL [Suspect]
     Indication: MULTIPLE SCLEROSIS
  3. AMPYRA [Concomitant]
  4. GILENYA [Concomitant]
  5. LYRICA [Concomitant]
  6. TIZANIDINE [Concomitant]
  7. NEXIUM [Concomitant]
  8. DIOVAN [Concomitant]

REACTIONS (8)
  - Feeling jittery [Not Recovered/Not Resolved]
  - Tinnitus [Recovered/Resolved]
  - Hyperhidrosis [Recovered/Resolved]
  - Insomnia [Recovered/Resolved]
  - Disturbance in attention [Recovered/Resolved]
  - Daydreaming [Recovered/Resolved]
  - Feeling jittery [Not Recovered/Not Resolved]
  - Off label use [Unknown]
